FAERS Safety Report 14548302 (Version 1)
Quarter: 2018Q1

REPORT INFORMATION
  Report Type: Spontaneous
  Country: US (occurrence: US)
  Receive Date: 20180219
  Receipt Date: 20180219
  Transmission Date: 20180509
  Serious: No
  Sender: FDA-Public Use
  Company Number: US-ROCHE-1888223

PATIENT
  Age: 59 Year
  Sex: Female
  Weight: 103.06 kg

DRUGS (1)
  1. XOLAIR [Suspect]
     Active Substance: OMALIZUMAB
     Indication: ASTHMA
     Dosage: 2 VIALS ONCE PER MONTH ;ONGOING: YES
     Route: 058
     Dates: start: 200810

REACTIONS (2)
  - Chromoblastomycosis [Not Recovered/Not Resolved]
  - Cyst [Recovered/Resolved]

NARRATIVE: CASE EVENT DATE: 201610
